FAERS Safety Report 19361145 (Version 1)
Quarter: 2021Q2

REPORT INFORMATION
  Report Type: Spontaneous
  Country: ES (occurrence: ES)
  Receive Date: 20210601
  Receipt Date: 20210601
  Transmission Date: 20210717
  Serious: Yes (Other)
  Sender: FDA-Public Use
  Company Number: ES-MACLEODS PHARMACEUTICALS US LTD-MAC2021031300

PATIENT

DRUGS (1)
  1. CLOBETASOL TOPICAL SOLUTION [Suspect]
     Active Substance: CLOBETASOL
     Indication: LICHEN PLANUS
     Dosage: UNK, 0.05 PERCENT, PROPIONATE SOLUTION, AS A SHAMPOO EVERYOTHER DAY
     Route: 061

REACTIONS (1)
  - Adrenal insufficiency [Recovered/Resolved]
